FAERS Safety Report 18916826 (Version 1)
Quarter: 2021Q1

REPORT INFORMATION
  Report Type: Spontaneous
  Country: FR (occurrence: FR)
  Receive Date: 20210219
  Receipt Date: 20210219
  Transmission Date: 20210420
  Serious: Yes (Hospitalization, Other)
  Sender: FDA-Public Use
  Company Number: FR-JNJFOC-20210233166

PATIENT
  Age: 80 Year
  Sex: Male
  Weight: 100 kg

DRUGS (10)
  1. TRAMADOL HYDROCHLORIDE. [Suspect]
     Active Substance: TRAMADOL HYDROCHLORIDE
     Indication: GOUT
     Dosage: 100 MILLIGRAM, 2/DAY
     Route: 065
  2. ALFUZOSINE [ALFUZOSIN] [Suspect]
     Active Substance: ALFUZOSIN HYDROCHLORIDE
     Indication: PRODUCT USED FOR UNKNOWN INDICATION
     Dosage: 10 MILLIGRAM, 1/DAY
     Route: 065
  3. PARACETAMOL [Suspect]
     Active Substance: ACETAMINOPHEN
     Route: 065
  4. HYDROXYZINE [Suspect]
     Active Substance: HYDROXYZINE HYDROCHLORIDE
     Indication: AGITATION
     Dosage: 50 MILLIGRAM, 2/DAY
     Route: 065
  5. FUROSEMIDE. [Suspect]
     Active Substance: FUROSEMIDE
     Indication: PRODUCT USED FOR UNKNOWN INDICATION
     Dosage: 40 MILLIGRAM, 1/DAY
     Route: 005
  6. PREDNISONE. [Suspect]
     Active Substance: PREDNISONE
     Indication: GOUT
     Dosage: 20 MILLIGRAM, 1/DAY
     Route: 065
  7. PARACETAMOL [Suspect]
     Active Substance: ACETAMINOPHEN
     Indication: GOUT
     Route: 065
  8. COLCHICINE;PAPAVER SOMNIFERUM;TIEMONIUM [Suspect]
     Active Substance: COLCHICINE\OPIUM\TIEMONIUM
     Indication: GOUT
     Dosage: 2 MILLIGRAM, 1/DAY
     Route: 065
  9. METFORMINE [METFORMIN] [Suspect]
     Active Substance: METFORMIN HYDROCHLORIDE
     Indication: PRODUCT USED FOR UNKNOWN INDICATION
     Dosage: 500 MILLIGRAM, 3/DAY
     Route: 065
  10. IPRATROPIUM BROMIDE. [Suspect]
     Active Substance: IPRATROPIUM BROMIDE
     Indication: ACUTE RESPIRATORY FAILURE
     Dosage: 2 DOSAGE FORM, 4/DAY
     Route: 065

REACTIONS (5)
  - Cardiac failure [Unknown]
  - Fall [Unknown]
  - Gout [Unknown]
  - Acute respiratory failure [Unknown]
  - Agitation [Unknown]
